FAERS Safety Report 4441082-0 (Version None)
Quarter: 2004Q3

REPORT INFORMATION
  Report Type: 
  Country: None (occurrence: None)
  Receive Date: 20040902
  Receipt Date: 20040902
  Transmission Date: 20050211
  Serious: Yes (Other)
  Sender: FDA-Public Use
  Company Number: None

PATIENT
  Sex: Female
  Weight: 9.0719 kg

DRUGS (2)
  1. METOCLOPRAMIDE [Suspect]
     Indication: GASTROOESOPHAGEAL REFLUX DISEASE
     Dosage: MAX DOSING Q 8 HRS ORAL
     Route: 048
     Dates: start: 20040201, end: 20040820
  2. PREVACID [Concomitant]

REACTIONS (2)
  - DYSKINESIA [None]
  - MUSCLE TWITCHING [None]
